FAERS Safety Report 24362674 (Version 1)
Quarter: 2024Q3

REPORT INFORMATION
  Report Type: Spontaneous
  Country: DK (occurrence: DK)
  Receive Date: 20240925
  Receipt Date: 20240925
  Transmission Date: 20241017
  Serious: Yes (Other)
  Sender: PURDUE
  Company Number: DK-STADA-01297857

PATIENT
  Age: 16 Year

DRUGS (5)
  1. OXYCODONE HYDROCHLORIDE [Suspect]
     Active Substance: OXYCODONE HYDROCHLORIDE
     Indication: Product used for unknown indication
     Dosage: UNK
     Route: 065
  2. BUPRENORPHINE [Interacting]
     Active Substance: BUPRENORPHINE
     Indication: Product used for unknown indication
     Dosage: RECEIVED LOW DOSE; 0.4-2MG IN FIVE STEPS DURING THE FIRST 24H
     Route: 065
  3. TAPENTADOL [Interacting]
     Active Substance: TAPENTADOL
     Indication: Product used for unknown indication
     Dosage: RECEIVED THROUGH TAMOLL X TABLET 225MG
     Route: 048
  4. TRAMADOL [Suspect]
     Active Substance: TRAMADOL\TRAMADOL HYDROCHLORIDE
     Indication: Product used for unknown indication
     Dosage: BATCH IDENTIFICATION IMPRINT (007M12) AND AN EXPIRATION DATE (22E/11 25)(225 MILLIGRAM)
     Route: 048
  5. CARISOPRODOL [Suspect]
     Active Substance: CARISOPRODOL
     Indication: Product used for unknown indication
     Dosage: RECEIVED THROUGH TAMOLL X TABLET 225MG
     Route: 048

REACTIONS (19)
  - Neutrophil count decreased [Recovering/Resolving]
  - Muscular weakness [Recovering/Resolving]
  - Slow speech [Recovering/Resolving]
  - Counterfeit product administered [Recovered/Resolved]
  - Influenza like illness [Recovered/Resolved]
  - Cyanosis [Recovering/Resolving]
  - Rash [Recovering/Resolving]
  - Miosis [Recovering/Resolving]
  - Drug interaction [Recovering/Resolving]
  - Chest pain [Recovering/Resolving]
  - Drug abuse [Recovered/Resolved]
  - Drug dependence [Recovered/Resolved]
  - Toxicity to various agents [Recovering/Resolving]
  - Mydriasis [Recovered/Resolved]
  - Somnolence [Recovering/Resolving]
  - Therapeutic product effect decreased [Recovering/Resolving]
  - Withdrawal syndrome [Recovered/Resolved]
  - Toxicity to various agents [Recovering/Resolving]
  - Drug withdrawal syndrome [Recovered/Resolved]
